FAERS Safety Report 4769977-9 (Version None)
Quarter: 2005Q3

REPORT INFORMATION
  Report Type: 
  Country: None (occurrence: None)
  Receive Date: 20050914
  Receipt Date: 20050914
  Transmission Date: 20060218
  Serious: Yes (Other)
  Sender: FDA-Public Use
  Company Number: None

PATIENT
  Sex: Female

DRUGS (5)
  1. PROVIGIL [Suspect]
     Indication: DEPRESSION
     Dosage: PO 200 MGM
     Route: 048
     Dates: start: 20050704, end: 20050729
  2. PROVIGIL [Suspect]
     Indication: FATIGUE
     Dosage: PO 200 MGM
     Route: 048
     Dates: start: 20050704, end: 20050729
  3. AVALIDE [Concomitant]
  4. WELLBUTRIN [Concomitant]
  5. NEURONTIN [Concomitant]

REACTIONS (8)
  - DECREASED APPETITE [None]
  - DIZZINESS [None]
  - EATING DISORDER [None]
  - FEELING ABNORMAL [None]
  - HYPOTENSION [None]
  - NAUSEA [None]
  - SYNCOPE [None]
  - VISION BLURRED [None]
